FAERS Safety Report 7459602-0 (Version None)
Quarter: 2011Q2

REPORT INFORMATION
  Report Type: 
  Country: None (occurrence: None)
  Receive Date: 20110505
  Receipt Date: 20110422
  Transmission Date: 20111010
  Serious: Yes (Other)
  Sender: FDA-Public Use
  Company Number: PHHY2011US34457

PATIENT
  Sex: Female

DRUGS (3)
  1. FLOVENT [Concomitant]
  2. AREDIA [Suspect]
     Indication: OSTEOPOROSIS
  3. PROAIR HFA [Concomitant]

REACTIONS (4)
  - HEART RATE IRREGULAR [None]
  - URINARY TRACT INFECTION [None]
  - CARDIAC DISORDER [None]
  - NEPHROLITHIASIS [None]
